FAERS Safety Report 19056008 (Version 1)
Quarter: 2021Q1

REPORT INFORMATION
  Report Type: Spontaneous
  Country: US (occurrence: US)
  Receive Date: 20210324
  Receipt Date: 20210324
  Transmission Date: 20210420
  Serious: Yes (Hospitalization)
  Sender: FDA-Public Use
  Company Number: None

PATIENT
  Age: 78 Year
  Sex: Male
  Weight: 81 kg

DRUGS (1)
  1. SULFAMETHOXAZOLE/TRIMETHOPRIM (SULFAMETHIZOLE 800MG/TRIMETHOPRIM 160MG [Suspect]
     Active Substance: SULFAMETHOXAZOLE\TRIMETHOPRIM
     Indication: URINARY TRACT INFECTION
     Dates: end: 20201228

REACTIONS (6)
  - Blood creatinine increased [None]
  - Hepatic enzyme increased [None]
  - Hyperkalaemia [None]
  - Acute kidney injury [None]
  - Pancreatic carcinoma [None]
  - Gallbladder enlargement [None]

NARRATIVE: CASE EVENT DATE: 20201127
